FAERS Safety Report 6893608-5 (Version None)
Quarter: 2010Q3

REPORT INFORMATION
  Report Type: 
  Country: None (occurrence: None)
  Receive Date: 20100731
  Receipt Date: 20091026
  Transmission Date: 20110219
  Serious: No
  Sender: FDA-Public Use
  Company Number: US-PFIZER INC-2009268461

PATIENT
  Sex: Female

DRUGS (4)
  1. LIPITOR [Suspect]
  2. TOPROL-XL [Concomitant]
  3. NAMENDA [Concomitant]
  4. PLAVIX [Concomitant]

REACTIONS (1)
  - LIVER DISORDER [None]
